FAERS Safety Report 4431894-1 (Version None)
Quarter: 2004Q3

REPORT INFORMATION
  Report Type: 
  Country: None (occurrence: None)
  Receive Date: 20040819
  Receipt Date: 20040811
  Transmission Date: 20050211
  Serious: No
  Sender: FDA-Public Use
  Company Number: 2004UW13007

PATIENT
  Age: 43 Year
  Sex: Male
  Weight: 117.9352 kg

DRUGS (2)
  1. SEROQUEL [Suspect]
     Indication: BIPOLAR DISORDER
     Dosage: 600 TO 700 MG DAILY
     Dates: start: 20021210
  2. DEPAKOTE [Concomitant]

REACTIONS (1)
  - GRIP STRENGTH DECREASED [None]
